FAERS Safety Report 13187416 (Version 1)
Quarter: 2017Q1

REPORT INFORMATION
  Report Type: Spontaneous
  Country: US (occurrence: US)
  Receive Date: 20170206
  Receipt Date: 20170206
  Transmission Date: 20170428
  Serious: No
  Sender: FDA-Public Use
  Company Number: US-ASTRAZENECA-2017SE09930

PATIENT

DRUGS (2)
  1. BENIDRYL (DIPHENHYDRAMINE\PSEUDOEPHEDRINE) [Interacting]
     Active Substance: DIPHENHYDRAMINE\PSEUDOEPHEDRINE
     Route: 065
  2. NEXIUM [Suspect]
     Active Substance: ESOMEPRAZOLE MAGNESIUM
     Route: 048

REACTIONS (1)
  - Drug interaction [Unknown]
